FAERS Safety Report 25558741 (Version 1)
Quarter: 2025Q3

REPORT INFORMATION
  Report Type: Spontaneous
  Country: US (occurrence: US)
  Receive Date: 20250715
  Receipt Date: 20250715
  Transmission Date: 20251021
  Serious: No
  Sender: NOVO NORDISK
  Company Number: US-NOVOPROD-1437571

PATIENT
  Age: 47 Year
  Sex: Female
  Weight: 87.528 kg

DRUGS (1)
  1. OZEMPIC [Suspect]
     Active Substance: SEMAGLUTIDE
     Indication: Product used for unknown indication

REACTIONS (4)
  - Weight loss poor [Unknown]
  - Food craving [Unknown]
  - Increased appetite [Unknown]
  - Product use issue [Unknown]
